FAERS Safety Report 19855895 (Version 1)
Quarter: 2021Q3

REPORT INFORMATION
  Report Type: Spontaneous
  Country: BR (occurrence: BR)
  Receive Date: 20210920
  Receipt Date: 20210920
  Transmission Date: 20211014
  Serious: Yes (Hospitalization, Other)
  Sender: FDA-Public Use
  Company Number: BR-BAYER-2021-211860

PATIENT
  Age: 48 Year
  Sex: Female

DRUGS (4)
  1. QLAIRA [Suspect]
     Active Substance: DIENOGEST\ESTRADIOL VALERATE
     Dosage: 1 DF, QD, 28D/0D
  2. AMOXICILLIN;CLAVULANATE POTASSIUM [Suspect]
     Active Substance: AMOXICILLIN\CLAVULANATE POTASSIUM
     Indication: NEPHRITIS
     Dosage: 1 DF, Q8HR
  3. CEFTRIAXONA [CEFTRIAXONE] [Suspect]
     Active Substance: CEFTRIAXONE
     Indication: NEPHRITIS
     Dosage: 1 DF, QD
     Dates: start: 20210908
  4. MICROVLAR [Suspect]
     Active Substance: ETHINYL ESTRADIOL\LEVONORGESTREL
     Dosage: STOPPED ON THE 14TH PILL

REACTIONS (4)
  - Nephritis [None]
  - Coital bleeding [None]
  - Inappropriate schedule of product administration [None]
  - Intermenstrual bleeding [Not Recovered/Not Resolved]

NARRATIVE: CASE EVENT DATE: 20210913
